FAERS Safety Report 17451743 (Version 1)
Quarter: 2020Q1

REPORT INFORMATION
  Report Type: Spontaneous
  Country: US (occurrence: US)
  Receive Date: 20200224
  Receipt Date: 20200224
  Transmission Date: 20200409
  Serious: No
  Sender: FDA-Public Use
  Company Number: US-SA-2020SA047639

PATIENT
  Age: 21 Year
  Sex: Male

DRUGS (3)
  1. CREATINE [Concomitant]
     Active Substance: CREATINE
  2. DUPIXENT [Suspect]
     Active Substance: DUPILUMAB
     Indication: DERMATITIS ATOPIC
  3. VITAMIN D3 [Concomitant]
     Active Substance: CHOLECALCIFEROL

REACTIONS (2)
  - Dermatitis atopic [Not Recovered/Not Resolved]
  - Dandruff [Not Recovered/Not Resolved]
